FAERS Safety Report 10912450 (Version 2)
Quarter: 2015Q2

REPORT INFORMATION
  Report Type: Report from Study
  Country: IT (occurrence: IT)
  Receive Date: 20150313
  Receipt Date: 20150406
  Transmission Date: 20150821
  Serious: Yes (Death, Hospitalization)
  Sender: FDA-Public Use
  Company Number: IT-BAYER-2015-034509

PATIENT
  Age: 74 Year
  Sex: Male
  Weight: 73 kg

DRUGS (9)
  1. LANTUS [Concomitant]
     Active Substance: INSULIN GLARGINE
     Indication: DIABETES MELLITUS
     Dosage: 14 U, DAILY
     Dates: start: 1992, end: 201009
  2. SORAFENIB [Suspect]
     Active Substance: SORAFENIB
     Indication: HEPATOCELLULAR CARCINOMA
     Dosage: 400 MG, BID
     Dates: start: 20100830, end: 20100921
  3. APIDRA [Concomitant]
     Active Substance: INSULIN GLULISINE
     Indication: DIABETES MELLITUS
     Dosage: 7U+13U+12U
     Dates: start: 1992, end: 201009
  4. LASIX [Concomitant]
     Active Substance: FUROSEMIDE
     Indication: HYPERTENSION
     Dosage: 1 DF, DAILY
     Dates: start: 2008, end: 201009
  5. BISOPROLOL [Concomitant]
     Active Substance: BISOPROLOL
     Indication: HYPERTENSION
     Dosage: 5 MG, DAILY
     Dates: start: 2008, end: 201009
  6. CLEXANE [Concomitant]
     Active Substance: ENOXAPARIN SODIUM
     Indication: VENOUS THROMBOSIS
     Dosage: 1 FL, DAILY
     Dates: start: 201008, end: 201009
  7. PRELECTAL [Concomitant]
     Indication: HYPERTENSION
     Dosage: 1 DF, DAILY
     Dates: start: 2008, end: 201009
  8. LUVION [Concomitant]
     Active Substance: CANRENONE
     Indication: HYPERTENSION
     Dosage: 50 MG, DAILY
     Dates: start: 2008, end: 201009
  9. DUROGESIC [Concomitant]
     Active Substance: FENTANYL
     Indication: PAIN
     Dosage: 50 ?G, DAILY
     Dates: end: 201009

REACTIONS (7)
  - Asterixis [None]
  - Acute hepatic failure [Fatal]
  - Nausea [Fatal]
  - Hepatitis acute [Fatal]
  - Decreased appetite [Fatal]
  - Jaundice [Fatal]
  - Asthenia [Fatal]

NARRATIVE: CASE EVENT DATE: 20100921
